FAERS Safety Report 9515734 (Version 1)
Quarter: 2013Q3

REPORT INFORMATION
  Report Type: Spontaneous
  Country: FR (occurrence: FR)
  Receive Date: 20130911
  Receipt Date: 20130911
  Transmission Date: 20140515
  Serious: Yes (Other)
  Sender: FDA-Public Use
  Company Number: FR-PFIZER INC-2013257651

PATIENT
  Age: 75 Year
  Sex: Female

DRUGS (1)
  1. AMLOR [Suspect]
     Indication: HYPERTENSION
     Dosage: 5 MG DAILY
     Dates: start: 201305, end: 20130814

REACTIONS (15)
  - Cataract [Unknown]
  - Erythema [Recovering/Resolving]
  - Nausea [Recovering/Resolving]
  - Decreased appetite [Recovering/Resolving]
  - Abdominal pain [Recovering/Resolving]
  - Diarrhoea [Recovering/Resolving]
  - Constipation [Recovering/Resolving]
  - Sleep disorder [Recovering/Resolving]
  - Nightmare [Recovering/Resolving]
  - Hallucination [Recovering/Resolving]
  - Gingival disorder [Recovering/Resolving]
  - Arthralgia [Recovering/Resolving]
  - Myalgia [Recovering/Resolving]
  - Pollakiuria [Recovering/Resolving]
  - Malaise [Recovering/Resolving]
